FAERS Safety Report 17630156 (Version 2)
Quarter: 2020Q2

REPORT INFORMATION
  Report Type: Report from Study
  Country: US (occurrence: US)
  Receive Date: 20200406
  Receipt Date: 20200501
  Transmission Date: 20200713
  Serious: Yes (Other)
  Sender: FDA-Public Use
  Company Number: US-JNJFOC-20200339430

PATIENT
  Age: 41 Year
  Sex: Male

DRUGS (4)
  1. VYVANSE [Concomitant]
     Active Substance: LISDEXAMFETAMINE DIMESYLATE
  2. SAPHRIS [Concomitant]
     Active Substance: ASENAPINE MALEATE
  3. SPRAVATO [Suspect]
     Active Substance: ESKETAMINE
     Indication: DEPRESSION
  4. VIIBRYD [Concomitant]
     Active Substance: VILAZODONE HYDROCHLORIDE

REACTIONS (7)
  - Sedation [Recovered/Resolved]
  - Headache [Recovered/Resolved]
  - Major depression [Recovered/Resolved]
  - Vision blurred [Unknown]
  - Visual impairment [Recovered/Resolved]
  - Dissociation [Recovered/Resolved]
  - Thinking abnormal [Recovered/Resolved]

NARRATIVE: CASE EVENT DATE: 20200317
